FAERS Safety Report 21273149 (Version 1)
Quarter: 2022Q3

REPORT INFORMATION
  Report Type: Report from Study
  Country: US (occurrence: US)
  Receive Date: 20220831
  Receipt Date: 20220831
  Transmission Date: 20221026
  Serious: Yes (Other)
  Sender: FDA-Public Use
  Company Number: US-GILEAD-2022-0594809

PATIENT
  Age: 74 Year
  Sex: Male

DRUGS (1)
  1. LEDIPASVIR\SOFOSBUVIR [Suspect]
     Active Substance: LEDIPASVIR\SOFOSBUVIR
     Indication: Hepatitis C
     Route: 065

REACTIONS (3)
  - Cerebrovascular accident [Unknown]
  - Cardiac pacemaker insertion [Not Recovered/Not Resolved]
  - Concussion [Unknown]
